FAERS Safety Report 5782355-9 (Version None)
Quarter: 2008Q2

REPORT INFORMATION
  Report Type: 
  Country: None (occurrence: None)
  Receive Date: 20080623
  Receipt Date: 20080616
  Transmission Date: 20081010
  Serious: Yes (Hospitalization)
  Sender: FDA-Public Use
  Company Number: US-BOEHRINGER INGELHEIM GMBH, GERMANY-2008-BP-08531BP

PATIENT
  Age: 68 Year
  Sex: Male
  Weight: 108 kg

DRUGS (10)
  1. MIRAPEX [Suspect]
     Indication: RESTLESS LEGS SYNDROME
     Dates: end: 20080523
  2. EFFEXOR XR [Concomitant]
  3. LIPITOR [Concomitant]
  4. GABAPENTIN [Concomitant]
  5. LOTREL [Concomitant]
  6. OXYCONTIN [Concomitant]
  7. TRAZODONE HCL [Concomitant]
  8. GLUCOPHAGE [Concomitant]
  9. PRILOSEC [Concomitant]
  10. ISTRAMAZONE [Concomitant]

REACTIONS (5)
  - ASTHENIA [None]
  - DIZZINESS [None]
  - DYSPNOEA [None]
  - GAIT DISTURBANCE [None]
  - GRIP STRENGTH DECREASED [None]
